FAERS Safety Report 5063055-X (Version None)
Quarter: 2006Q3

REPORT INFORMATION
  Report Type: 
  Country: None (occurrence: None)
  Receive Date: 20060727
  Receipt Date: 20060718
  Transmission Date: 20061208
  Serious: Yes (Hospitalization)
  Sender: FDA-Public Use
  Company Number: PHBS2006NO10787

PATIENT
  Sex: Female

DRUGS (7)
  1. VOLTAREN [Suspect]
     Indication: HIP FRACTURE
     Dosage: 50 MG, TID
     Dates: start: 20060601
  2. ALBYL-E [Suspect]
     Indication: CORONARY ARTERY DISEASE
     Dosage: 75 MG/DAY
     Dates: start: 20060115, end: 20060710
  3. PLAVIX [Suspect]
     Indication: CORONARY ARTERY DISEASE
     Dosage: 75 MG/DAY
     Dates: start: 20060115, end: 20060710
  4. SELO-ZOK [Concomitant]
     Indication: CORONARY ARTERY DISEASE
     Dosage: 25 MG/DAY
  5. ALDACTONE [Concomitant]
     Indication: CARDIAC FAILURE
     Dosage: 50 MG, BID
  6. EBIXA [Concomitant]
     Indication: DEMENTIA
     Dosage: 10 MG, BID
  7. DIURAL [Concomitant]
     Indication: HYPERTENSION
     Dosage: 10 MG, BID

REACTIONS (2)
  - DRUG INTERACTION [None]
  - PEPTIC ULCER HAEMORRHAGE [None]
